FAERS Safety Report 20837860 (Version 1)
Quarter: 2022Q2

REPORT INFORMATION
  Report Type: Spontaneous
  Country: US (occurrence: US)
  Receive Date: 20220517
  Receipt Date: 20220517
  Transmission Date: 20220721
  Serious: No
  Sender: FDA-Public Use
  Company Number: US-ALLERGAN-2117964US

PATIENT
  Sex: Female

DRUGS (1)
  1. KYBELLA [Suspect]
     Active Substance: DEOXYCHOLIC ACID
     Indication: Lipolysis procedure
     Dosage: UNK, SINGLE
     Dates: start: 20210324, end: 20210324

REACTIONS (7)
  - Rash erythematous [Not Recovered/Not Resolved]
  - Skin exfoliation [Recovered/Resolved]
  - Injection site irritation [Not Recovered/Not Resolved]
  - Injection site rash [Not Recovered/Not Resolved]
  - Injection site discolouration [Unknown]
  - Injection site pain [Unknown]
  - Injection site bruising [Unknown]
